FAERS Safety Report 8463159 (Version 2)
Quarter: 2013Q1

REPORT INFORMATION
  Report Type: Spontaneous
  Country: DE (occurrence: DE)
  Receive Date: 20120316
  Receipt Date: 20130206
  Transmission Date: 20140127
  Serious: Yes (Death, Other)
  Sender: FDA-Public Use
  Company Number: DE-PFIZER INC-2012064984

PATIENT
  Age: 59 Year
  Sex: Female

DRUGS (2)
  1. PIPERACILLIN/TAZOBACTAM [Suspect]
  2. METAMIZOLE [Suspect]

REACTIONS (1)
  - Toxic epidermal necrolysis [Fatal]
